FAERS Safety Report 8274411-0 (Version None)
Quarter: 2012Q2

REPORT INFORMATION
  Report Type: 
  Country: None (occurrence: None)
  Receive Date: 20120411
  Receipt Date: 20120329
  Transmission Date: 20120825
  Serious: Yes (Hospitalization, Disabling)
  Sender: FDA-Public Use
  Company Number: CH-ROCHE-1055451

PATIENT
  Age: 65 Year
  Sex: Female

DRUGS (8)
  1. CISPLATIN [Suspect]
     Indication: ADENOCARCINOMA
     Route: 042
     Dates: start: 20111230
  2. CRESTOR [Concomitant]
  3. DOLPASSE [Concomitant]
  4. AVASTIN [Suspect]
     Indication: ADENOCARCINOMA
     Route: 042
     Dates: start: 20111230
  5. CARBOPLATIN [Suspect]
     Indication: ADENOCARCINOMA
     Dates: start: 20110214
  6. NORFLOXACIN [Concomitant]
     Dates: start: 20120329
  7. PEMETREXED DISODIUM [Suspect]
     Indication: ADENOCARCINOMA
     Route: 042
     Dates: start: 20111230
  8. POTASSIUM CHLORIDE [Concomitant]

REACTIONS (4)
  - ANAEMIA [None]
  - DIARRHOEA [None]
  - VOMITING [None]
  - GENERAL PHYSICAL HEALTH DETERIORATION [None]
